FAERS Safety Report 20248355 (Version 1)
Quarter: 2021Q4

REPORT INFORMATION
  Report Type: Report from Study
  Country: FR (occurrence: FR)
  Receive Date: 20211229
  Receipt Date: 20211229
  Transmission Date: 20220303
  Serious: Yes (Hospitalization)
  Sender: FDA-Public Use
  Company Number: FR-SERVIER-S21007063

PATIENT

DRUGS (12)
  1. PEGASPARGASE [Suspect]
     Active Substance: PEGASPARGASE
     Indication: Acute lymphocytic leukaemia
     Dosage: 5025 IU
     Route: 042
     Dates: start: 20190819, end: 20191104
  2. VINCRISTINE SULFATE [Suspect]
     Active Substance: VINCRISTINE SULFATE
     Indication: Acute lymphocytic leukaemia
     Dosage: 2 MG, D1, D8, D15
     Route: 042
     Dates: start: 20190816, end: 20191104
  3. DAUNORUBICIN [Suspect]
     Active Substance: DAUNORUBICIN
     Indication: Acute lymphocytic leukaemia
     Dosage: 50.8 MG, D1, D4, D15
     Route: 042
     Dates: start: 20190816, end: 20190830
  4. DEXAMETHASONE SODIUM PHOSPHATE [Suspect]
     Active Substance: DEXAMETHASONE SODIUM PHOSPHATE
     Indication: Acute lymphocytic leukaemia
     Dosage: 20 MG
     Route: 048
     Dates: start: 20190816, end: 20190905
  5. DEXAMETHASONE SODIUM PHOSPHATE [Suspect]
     Active Substance: DEXAMETHASONE SODIUM PHOSPHATE
     Dosage: 3 MG, D1 TO D7, D15 TO D21
     Route: 048
     Dates: start: 20190816, end: 20190905
  6. THIOGUANINE [Suspect]
     Active Substance: THIOGUANINE
     Indication: Acute lymphocytic leukaemia
     Dosage: 120 MG
     Route: 048
     Dates: start: 20191007, end: 20191101
  7. TN UNSPECIFIED [Concomitant]
     Indication: Acute lymphocytic leukaemia
     Dosage: 15 MG
     Route: 037
     Dates: start: 20190819, end: 20191009
  8. TN UNSPECIFIED [Concomitant]
     Indication: Acute lymphocytic leukaemia
     Dosage: 30 MG
     Route: 037
     Dates: start: 20190819, end: 20191009
  9. TN UNSPECIFIED [Concomitant]
     Dosage: 150 MG, D31 TO D34, D38 TO D41
     Route: 042
     Dates: start: 20191008, end: 20191031
  10. TN UNSPECIFIED [Concomitant]
     Indication: Acute lymphocytic leukaemia
     Dosage: 15 MG
     Route: 037
     Dates: start: 20190819, end: 20191009
  11. TN UNSPECIFIED [Concomitant]
     Indication: Acute lymphocytic leukaemia
     Dosage: 2000 MG
     Route: 042
     Dates: start: 20191007
  12. TN UNSPECIFIED [Concomitant]
     Indication: Acute lymphocytic leukaemia
     Dosage: 120 MG
     Route: 048
     Dates: start: 20191007, end: 20191103

REACTIONS (2)
  - Infective myositis [Recovered/Resolved]
  - Septic shock [Recovered/Resolved]

NARRATIVE: CASE EVENT DATE: 20190907
